FAERS Safety Report 18072513 (Version 1)
Quarter: 2020Q3

REPORT INFORMATION
  Report Type: Spontaneous
  Country: US (occurrence: US)
  Receive Date: 20200727
  Receipt Date: 20200727
  Transmission Date: 20201103
  Serious: Yes (Hospitalization, Other)
  Sender: FDA-Public Use
  Company Number: US-BAYER-2020-150665

PATIENT
  Age: 39 Year
  Sex: Female

DRUGS (1)
  1. MIRENA [Suspect]
     Active Substance: LEVONORGESTREL
     Dosage: 20 ?G / 24H CONTINOUSLY
     Route: 015

REACTIONS (4)
  - Migraine [Recovered/Resolved]
  - Abdominal pain [None]
  - Uterine perforation [Recovered/Resolved]
  - Device dislocation [Recovered/Resolved]
